FAERS Safety Report 12716437 (Version 1)
Quarter: 2016Q3

REPORT INFORMATION
  Report Type: Spontaneous
  Country: US (occurrence: US)
  Receive Date: 20160906
  Receipt Date: 20160906
  Transmission Date: 20161109
  Serious: Yes (Other)
  Sender: FDA-Public Use
  Company Number: US-ASTELLAS-2016US024583

PATIENT
  Age: 61 Year
  Sex: Male

DRUGS (3)
  1. XTANDI [Suspect]
     Active Substance: ENZALUTAMIDE
     Indication: PROSTATE CANCER
     Route: 048
     Dates: start: 201509
  2. XTANDI [Suspect]
     Active Substance: ENZALUTAMIDE
     Indication: PROSTATE CANCER METASTATIC
     Route: 048
  3. XTANDI [Suspect]
     Active Substance: ENZALUTAMIDE
     Indication: METASTASES TO BONE

REACTIONS (5)
  - Malignant neoplasm progression [Not Recovered/Not Resolved]
  - Pain [Not Recovered/Not Resolved]
  - Overdose [Unknown]
  - Fall [Unknown]
  - Clavicle fracture [Not Recovered/Not Resolved]

NARRATIVE: CASE EVENT DATE: 20160513
